FAERS Safety Report 4311944-3 (Version None)
Quarter: 2004Q1

REPORT INFORMATION
  Report Type: 
  Country: None (occurrence: None)
  Receive Date: 20040305
  Receipt Date: 20030917
  Transmission Date: 20041129
  Serious: Yes (Hospitalization)
  Sender: FDA-Public Use
  Company Number: US-BRISTOL-MYERS SQUIBB COMPANY-12385662

PATIENT
  Age: 16 Year
  Sex: Female
  Weight: 62 kg

DRUGS (1)
  1. SERZONE [Suspect]
     Indication: DEPRESSION
     Dosage: STARTED 14-MAR-2000 AT A DOSE OF 50MG BID + TITRATED TO 150MG BID-IN AUG-00 DOSE WAS ^400MG^
     Route: 048
     Dates: start: 20000314

REACTIONS (23)
  - ACUTE RESPIRATORY DISTRESS SYNDROME [None]
  - AMENORRHOEA [None]
  - ANAEMIA [None]
  - AUTOIMMUNE HEPATITIS [None]
  - BLOOD GLUCOSE DECREASED [None]
  - CANDIDA SEPSIS [None]
  - COLITIS [None]
  - DIABETES MELLITUS [None]
  - DISORIENTATION [None]
  - ENCEPHALOPATHY [None]
  - GASTROINTESTINAL HAEMORRHAGE [None]
  - HEPATIC FAILURE [None]
  - HEPATIC NECROSIS [None]
  - HEPATITIS ACUTE [None]
  - HEPATOMEGALY [None]
  - HYPERGLYCAEMIA [None]
  - LIVER TRANSPLANT [None]
  - LIVER TRANSPLANT REJECTION [None]
  - LOBAR PNEUMONIA [None]
  - PLEURAL EFFUSION [None]
  - RENAL FAILURE ACUTE [None]
  - SPLENOMEGALY [None]
  - TREATMENT NONCOMPLIANCE [None]
